FAERS Safety Report 15566559 (Version 1)
Quarter: 2018Q4

REPORT INFORMATION
  Report Type: Spontaneous
  Country: FR (occurrence: FR)
  Receive Date: 20181030
  Receipt Date: 20181030
  Transmission Date: 20190205
  Serious: Yes (Hospitalization)
  Sender: FDA-Public Use
  Company Number: FR-TEVA-2018-FR-968588

PATIENT
  Age: 57 Year
  Sex: Female
  Weight: 59 kg

DRUGS (1)
  1. DELURSAN 250 MG, COMPRIM? PELLICUL? [Suspect]
     Active Substance: URSODIOL
     Indication: CHOLESTASIS
     Dosage: 250 MILLIGRAM DAILY;
     Route: 048
     Dates: start: 20180823, end: 20180827

REACTIONS (1)
  - Rash maculo-papular [Recovered/Resolved]

NARRATIVE: CASE EVENT DATE: 20180826
